FAERS Safety Report 4353587-1 (Version None)
Quarter: 2004Q2

REPORT INFORMATION
  Report Type: 
  Country: None (occurrence: None)
  Receive Date: 20040430
  Receipt Date: 20040414
  Transmission Date: 20050107
  Serious: Yes (Hospitalization)
  Sender: FDA-Public Use
  Company Number: 2003-05881

PATIENT
  Age: 45 Year
  Sex: Female
  Weight: 66 kg

DRUGS (8)
  1. TENOFOVIR DISOPROXIL FUMARATE (TENOFOVIR DISOPROXIL FUMARATE) (TABLET) [Suspect]
     Indication: HIV INFECTION
     Dosage: 300 MG, ONCE A DAY, ORAL
     Route: 048
     Dates: start: 20030207, end: 20030729
  2. KALETRA [Concomitant]
  3. BACTRIM [Concomitant]
  4. INDAPAMIDE [Concomitant]
  5. VIDEX [Concomitant]
  6. ISONIAZID [Concomitant]
  7. PAROXETINE HCL [Concomitant]
  8. RIFABUTIN (RIFABUTIN) [Concomitant]

REACTIONS (5)
  - BLOOD PRESSURE INCREASED [None]
  - MALAISE [None]
  - NAUSEA [None]
  - RENAL TUBULAR ACIDOSIS [None]
  - THIRST [None]
